FAERS Safety Report 22761891 (Version 2)
Quarter: 2023Q4

REPORT INFORMATION
  Report Type: Spontaneous
  Country: US (occurrence: US)
  Receive Date: 20230728
  Receipt Date: 20231023
  Transmission Date: 20240110
  Serious: No
  Sender: FDA-Public Use
  Company Number: US-PFIZER INC-PV202300126355

PATIENT
  Age: 67 Year
  Sex: Female
  Weight: 101.86 kg

DRUGS (1)
  1. GLIPIZIDE [Suspect]
     Active Substance: GLIPIZIDE
     Dosage: UNK

REACTIONS (2)
  - Vision blurred [Unknown]
  - Drug hypersensitivity [Unknown]
